FAERS Safety Report 24713238 (Version 4)
Quarter: 2025Q1

REPORT INFORMATION
  Report Type: Spontaneous
  Country: US (occurrence: US)
  Receive Date: 20241209
  Receipt Date: 20250121
  Transmission Date: 20250409
  Serious: No
  Sender: CALLIDITAS THERAPEUTICS AB
  Company Number: US-Calliditas-2024CAL02781

PATIENT
  Age: 64 Year
  Sex: Female

DRUGS (13)
  1. TARPEYO [Suspect]
     Active Substance: BUDESONIDE
     Indication: Proteinuria
     Route: 048
     Dates: start: 20241023
  2. GINKGO [Concomitant]
     Active Substance: GINKGO
  3. ASPIRIN [Concomitant]
     Active Substance: ASPIRIN
  4. HYDROCHLOROTHIAZIDE [Concomitant]
     Active Substance: HYDROCHLOROTHIAZIDE
  5. LEVOTHYROXINE SODIUM [Concomitant]
     Active Substance: LEVOTHYROXINE SODIUM
  6. FISH OIL [Concomitant]
     Active Substance: FISH OIL
  7. SIMVASTATIN [Concomitant]
     Active Substance: SIMVASTATIN
  8. CALCITRIOL [Concomitant]
     Active Substance: CALCITRIOL
  9. JOINT HEALTH [Concomitant]
     Active Substance: AMINO ACIDS\BARLEY MALT
  10. LOSARTAN [Concomitant]
     Active Substance: LOSARTAN
  11. MOMETASONE FUROATE [Concomitant]
     Active Substance: MOMETASONE FUROATE
  12. CALCIUM [Concomitant]
     Active Substance: CALCIUM
  13. FARXIGA [Concomitant]
     Active Substance: DAPAGLIFLOZIN PROPANEDIOL

REACTIONS (4)
  - Blood pressure increased [Not Recovered/Not Resolved]
  - Colonoscopy [Unknown]
  - Intentional underdose [Unknown]
  - Product dose omission issue [Recovering/Resolving]

NARRATIVE: CASE EVENT DATE: 20250112
